FAERS Safety Report 6252123-2 (Version None)
Quarter: 2009Q2

REPORT INFORMATION
  Report Type: 
  Country: None (occurrence: None)
  Receive Date: 20090630
  Receipt Date: 20051205
  Transmission Date: 20091009
  Serious: Yes (Hospitalization)
  Sender: FDA-Public Use
  Company Number: US-ROCHE-639111

PATIENT
  Sex: Female

DRUGS (12)
  1. ENFUVIRTIDE [Suspect]
     Route: 065
     Dates: start: 20040928, end: 20080414
  2. NORVIR [Concomitant]
     Dosage: FREQUENCY REPORTED AS QD
     Dates: start: 20040409, end: 20080414
  3. REYATAZ [Concomitant]
     Dosage: FREQUENCY REPORTED AS QD
     Dates: start: 20040409, end: 20080414
  4. VIDEX [Concomitant]
     Dosage: FREQUENCY REPORTED AS QD.  DRUG NAME REPORTED AS VIDEX EC
     Dates: start: 20040409, end: 20061013
  5. VIREAD [Concomitant]
     Dosage: FREQUENCY REPORTED AS QD
     Dates: start: 20040409, end: 20061013
  6. LEVAQUIN [Concomitant]
     Dosage: FREQUENCY REPORTED AS QD
     Dates: start: 20041216, end: 20050317
  7. AUGMENTIN [Concomitant]
     Dates: start: 20050217, end: 20050317
  8. FLUCONAZOLE [Concomitant]
     Dosage: FREQUENCY REPORTED AS QD
     Dates: start: 20050830, end: 20080814
  9. SEPTRA [Concomitant]
     Dosage: FREQUENCY REPORTED AS QD
     Dates: start: 20050830, end: 20070824
  10. VANCOMYCIN [Concomitant]
     Dates: start: 20051205, end: 20051213
  11. ZITHROMAX [Concomitant]
     Dates: start: 20051205, end: 20080814
  12. ACYCLOVIR [Concomitant]
     Dates: end: 20080814

REACTIONS (2)
  - EMPYEMA [None]
  - RESPIRATORY FAILURE [None]
